FAERS Safety Report 24948768 (Version 3)
Quarter: 2025Q1

REPORT INFORMATION
  Report Type: Spontaneous
  Country: MX (occurrence: MX)
  Receive Date: 20250210
  Receipt Date: 20250219
  Transmission Date: 20250408
  Serious: Yes (Life-Threatening, Hospitalization, Disabling, Other)
  Sender: ABBVIE
  Company Number: MX-ABBVIE-6125531

PATIENT
  Age: 64 Year
  Sex: Female

DRUGS (2)
  1. BOTOX [Suspect]
     Active Substance: ONABOTULINUMTOXINA
     Indication: Cerebrovascular accident
     Route: 030
     Dates: start: 20250108, end: 20250108
  2. DYSPORT [Suspect]
     Active Substance: ABOBOTULINUMTOXINA
     Indication: Hypotonia
     Route: 065

REACTIONS (15)
  - Hemiplegia [Unknown]
  - Toxicity to various agents [Unknown]
  - Dyspnoea [Unknown]
  - Arthropathy [Unknown]
  - Muscular weakness [Unknown]
  - Facial paralysis [Unknown]
  - Dysphagia [Unknown]
  - Dose calculation error [Unknown]
  - Impaired quality of life [Unknown]
  - Botulism [Unknown]
  - Diaphragmatic paralysis [Unknown]
  - Bronchitis [Unknown]
  - Cerebrovascular accident [Unknown]
  - Product preparation issue [Unknown]
  - Impaired gastric emptying [Unknown]

NARRATIVE: CASE EVENT DATE: 20250108
